FAERS Safety Report 9215550 (Version 1)
Quarter: 2013Q2

REPORT INFORMATION
  Report Type: Spontaneous
  Country: US (occurrence: US)
  Receive Date: 20130407
  Receipt Date: 20130407
  Transmission Date: 20140414
  Serious: No
  Sender: FDA-Public Use
  Company Number: US-009507513-1304USA000734

PATIENT
  Age: 71 Year
  Sex: Female

DRUGS (4)
  1. DULERA [Suspect]
     Indication: ASTHMA
     Dosage: TWO PUFFS, ONCE
     Route: 055
     Dates: start: 20130318, end: 20130318
  2. NASONEX [Concomitant]
  3. LIPITOR [Concomitant]
  4. ADVAIR [Concomitant]

REACTIONS (4)
  - Thinking abnormal [Recovering/Resolving]
  - Dizziness [Recovering/Resolving]
  - Insomnia [Recovering/Resolving]
  - Nausea [Recovering/Resolving]
